FAERS Safety Report 19195935 (Version 1)
Quarter: 2021Q2

REPORT INFORMATION
  Report Type: Spontaneous
  Country: US (occurrence: US)
  Receive Date: 20210429
  Receipt Date: 20210429
  Transmission Date: 20210717
  Serious: Yes (Other)
  Sender: FDA-Public Use
  Company Number: US-BAYER-2021-130539

PATIENT
  Age: 27 Year
  Sex: Female

DRUGS (1)
  1. MIRENA [Suspect]
     Active Substance: LEVONORGESTREL
     Indication: CONTRACEPTION
     Dosage: 20 ?G PER DAY,CONTINUOUSLY
     Route: 015
     Dates: start: 202010

REACTIONS (5)
  - Drug ineffective [None]
  - Post procedural haemorrhage [Recovered/Resolved]
  - Pregnancy with contraceptive device [None]
  - Procedural pain [None]
  - Genital haemorrhage [Recovered/Resolved]

NARRATIVE: CASE EVENT DATE: 202010
